FAERS Safety Report 21512506 (Version 1)
Quarter: 2022Q4

REPORT INFORMATION
  Report Type: Spontaneous
  Country: AU (occurrence: AU)
  Receive Date: 20221027
  Receipt Date: 20221027
  Transmission Date: 20230113
  Serious: Yes (Other)
  Sender: FDA-Public Use
  Company Number: AU-JNJFOC-20221042001

PATIENT

DRUGS (6)
  1. OPSUMIT [Suspect]
     Active Substance: MACITENTAN
     Indication: Pulmonary arterial hypertension
     Route: 048
  2. UPTRAVI [Suspect]
     Active Substance: SELEXIPAG
     Indication: Pulmonary arterial hypertension
     Route: 048
     Dates: start: 202102
  3. SILDENAFIL [Concomitant]
     Active Substance: SILDENAFIL
  4. RIVAROXABAN [Concomitant]
     Active Substance: RIVAROXABAN
  5. FUROSEMIDE [Concomitant]
     Active Substance: FUROSEMIDE
     Dosage: PRN
  6. RALINEPAG [Concomitant]
     Active Substance: RALINEPAG
     Dates: start: 201907, end: 202102

REACTIONS (1)
  - Pericardial effusion [Unknown]
